FAERS Safety Report 10099878 (Version 1)
Quarter: 2014Q2

REPORT INFORMATION
  Report Type: Spontaneous
  Country: US (occurrence: None)
  Receive Date: 20140422
  Receipt Date: 20140422
  Transmission Date: 20141212
  Serious: Yes (Other)
  Sender: FDA-Public Use
  Company Number: None

PATIENT
  Age: 58 Year
  Sex: Female
  Weight: 118.39 kg

DRUGS (2)
  1. VERAPAMIL [Suspect]
     Indication: HEART RATE
     Route: 048
     Dates: start: 20140303, end: 20140421
  2. VERAPAMIL [Suspect]
     Indication: HYPERTENSION
     Route: 048
     Dates: start: 20140303, end: 20140421

REACTIONS (2)
  - Wheezing [None]
  - Dyspnoea [None]
